FAERS Safety Report 8346044-9 (Version None)
Quarter: 2012Q2

REPORT INFORMATION
  Report Type: 
  Country: None (occurrence: None)
  Receive Date: 20120509
  Receipt Date: 20120504
  Transmission Date: 20120825
  Serious: No
  Sender: FDA-Public Use
  Company Number: US-PFIZER INC-2012110355

PATIENT
  Sex: Female
  Weight: 90 kg

DRUGS (5)
  1. NORVASC [Concomitant]
     Indication: BLOOD PRESSURE ABNORMAL
     Dosage: 5 MG, DAILY
     Route: 048
  2. LYRICA [Suspect]
     Dosage: 100 MG, 3X/DAY
     Route: 048
  3. LYRICA [Suspect]
     Dosage: 100 MG, 2X/DAY
     Route: 048
  4. LYRICA [Suspect]
     Indication: PERIPHERAL SENSORY NEUROPATHY
     Dosage: 100 MG, 2X/DAY
     Route: 048
     Dates: start: 20110101
  5. SYNTHROID [Concomitant]
     Indication: THYROID DISORDER
     Dosage: 125 UG, DAILY

REACTIONS (5)
  - SENSORY LOSS [None]
  - WEIGHT INCREASED [None]
  - NEUROPATHY PERIPHERAL [None]
  - THYROID FUNCTION TEST ABNORMAL [None]
  - PARAESTHESIA [None]
